FAERS Safety Report 9494604 (Version 3)
Quarter: 2014Q2

REPORT INFORMATION
  Report Type: Spontaneous
  Country: TW (occurrence: TW)
  Receive Date: 20130903
  Receipt Date: 20140530
  Transmission Date: 20141212
  Serious: Yes (Death, Hospitalization)
  Sender: FDA-Public Use
  Company Number: TW-PFIZER INC-2013248509

PATIENT
  Age: 80 Year
  Sex: Male

DRUGS (2)
  1. SUTENT [Suspect]
     Indication: RENAL CELL CARCINOMA
     Dosage: 25 MG, CYCLIC ONCE DAILY, 2 WEEKS ON AND 1 WEEK OFF
     Route: 048
     Dates: start: 20130403
  2. SUTENT [Suspect]
     Dosage: 2# ONCE DAILY, 2 WEEKS ON AND 1 WEEK OFF
     Route: 048

REACTIONS (2)
  - Death [Fatal]
  - Lung infection [Recovered/Resolved]
